FAERS Safety Report 22113619 (Version 1)
Quarter: 2023Q1

REPORT INFORMATION
  Report Type: Report from Study
  Country: CA (occurrence: CA)
  Receive Date: 20230320
  Receipt Date: 20230320
  Transmission Date: 20230418
  Serious: Yes (Other)
  Sender: FDA-Public Use
  Company Number: CA-CELLTRION INC.-2022CA001713

PATIENT

DRUGS (10)
  1. TRUXIMA [Suspect]
     Active Substance: RITUXIMAB-ABBS
     Indication: Vasculitis
     Dosage: 1000 MG
     Route: 042
     Dates: start: 20210413
  2. TRUXIMA [Suspect]
     Active Substance: RITUXIMAB-ABBS
     Dosage: 500 MILLIGRAM, INFUSION #5
     Route: 042
     Dates: start: 20220222
  3. TRUXIMA [Suspect]
     Active Substance: RITUXIMAB-ABBS
     Dosage: 500 MG INFUSION#7
     Route: 042
     Dates: start: 20210413
  4. DIPHENHYDRAMINE HYDROCHLORIDE [Concomitant]
     Active Substance: DIPHENHYDRAMINE HYDROCHLORIDE
     Dosage: 50 MG
  5. ACETAMINOPHEN [Concomitant]
     Active Substance: ACETAMINOPHEN
     Dosage: 650 MG
  6. METHYLPREDNISOLONE [Concomitant]
     Active Substance: METHYLPREDNISOLONE
     Dosage: 100 MG
  7. SULFADIAZINE\TRIMETHOPRIM [Concomitant]
     Active Substance: SULFADIAZINE\TRIMETHOPRIM
     Indication: Prophylaxis
     Dosage: EVERY MONDAY, WEDNESDAY AND FRIDAY
  8. TYLENOL [Concomitant]
     Active Substance: ACETAMINOPHEN
     Dosage: 650 MG
     Route: 048
  9. BENADRYL [Concomitant]
     Active Substance: DIPHENHYDRAMINE HYDROCHLORIDE
     Dosage: 50 MG
     Route: 048
  10. SOLU-MEDROL [Concomitant]
     Active Substance: METHYLPREDNISOLONE SODIUM SUCCINATE
     Dosage: 100 MG
     Route: 042

REACTIONS (9)
  - Vein rupture [Unknown]
  - Poor venous access [Unknown]
  - Poor venous access [Unknown]
  - Venous occlusion [Unknown]
  - Infusion site haemorrhage [Unknown]
  - Infusion site haematoma [Unknown]
  - Product administration interrupted [Unknown]
  - Product administration error [Unknown]
  - Treatment delayed [Unknown]

NARRATIVE: CASE EVENT DATE: 20220222
